FAERS Safety Report 9209174 (Version 1)
Quarter: 2013Q1

REPORT INFORMATION
  Report Type: Spontaneous
  Country: US (occurrence: None)
  Receive Date: 20120820
  Receipt Date: 20120820
  Transmission Date: 20140127
  Serious: No
  Sender: FDA-Public Use
  Company Number: 1000031065

PATIENT
  Age: 66 Year
  Sex: Female

DRUGS (15)
  1. VIIBRYD (VILAZODONE)(10 MILLIGRAM, TABLETS) [Suspect]
     Indication: MAJOR DEPRESSION
     Route: 048
     Dates: start: 20120601
  2. LORAZEPAM(LORAZEPAM)(LORAZEPAM) [Concomitant]
  3. VOLTAREN(DICLOFENAC)(DICLOFENAC) [Concomitant]
  4. BUMEX (BUMETANIDE) [Concomitant]
  5. BUSPIRONE(BUSPIRONE)(BUSPIRONE) [Concomitant]
  6. ACCOLATE(ZAFIRLUKAST)(ZAFIRLUKAST) [Concomitant]
  7. ADVAIR DISKUS (FLUTICASONE)(FLUTICASONE) [Suspect]
  8. NASONEX(MOMETASONE FUROATE)(MOMETASONE FUROATE) [Suspect]
  9. NEXIUM (ESOMEPRAZOLE) (ESOMEPRAZOLE) [Concomitant]
  10. VITAMIN B-12 (CYANOCOBALAMIN) (CYANOCOBALAMIN) [Concomitant]
  11. MAXIMUM D3 (COLECALCIFEROL) (COLECALCIFEROL) [Concomitant]
  12. POTASSIUM (POTASSIUM) (POTASSIUM) [Concomitant]
  13. CENTRUM MULTIVITAMINS (CENTRUM MULTIVITAMINS) (CENTRUM MULTIVITAMINS) [Concomitant]
  14. BIOTIN (BIOTIN) (BIOTIN) [Concomitant]
  15. VITAMIN B-6 (PYRIDOXINE HYDROCHLORIDE) (PYRIDOXINE HYDROCHLORIDE) [Concomitant]

REACTIONS (1)
  - Muscular weakness [None]
